FAERS Safety Report 19233749 (Version 1)
Quarter: 2021Q2

REPORT INFORMATION
  Report Type: Spontaneous
  Country: IN (occurrence: IN)
  Receive Date: 20210507
  Receipt Date: 20210507
  Transmission Date: 20210717
  Serious: Yes (Other)
  Sender: FDA-Public Use
  Company Number: IN-UCBSA-2021021404

PATIENT
  Age: 4 Year
  Sex: Male

DRUGS (2)
  1. KEPPRA [Suspect]
     Active Substance: LEVETIRACETAM
     Indication: SEIZURE
     Dosage: 400 MILLIGRAMS DAILY
  2. KEPPRA [Suspect]
     Active Substance: LEVETIRACETAM
     Dosage: 800 MILLIGRAMS DAILY

REACTIONS (2)
  - Obsessive-compulsive disorder [Recovered/Resolved]
  - Product use issue [Unknown]
